FAERS Safety Report 5475250-6 (Version None)
Quarter: 2007Q4

REPORT INFORMATION
  Report Type: 
  Country: None (occurrence: None)
  Receive Date: 20071002
  Receipt Date: 20070920
  Transmission Date: 20080405
  Serious: Yes (Other)
  Sender: FDA-Public Use
  Company Number: US-PFIZER INC-2007079841

PATIENT
  Age: 62 Year
  Sex: Male
  Weight: 81.818 kg

DRUGS (1)
  1. CHANTIX [Suspect]
     Indication: SMOKING CESSATION THERAPY
     Route: 048

REACTIONS (4)
  - COLON OPERATION [None]
  - DIARRHOEA [None]
  - HAEMATOCHEZIA [None]
  - VOMITING [None]
